FAERS Safety Report 19962131 (Version 1)
Quarter: 2021Q4

REPORT INFORMATION
  Report Type: Other
  Country: KR (occurrence: KR)
  Receive Date: 20211018
  Receipt Date: 20211018
  Transmission Date: 20220303
  Serious: Yes (Hospitalization)
  Sender: FDA-Public Use
  Company Number: KR-ROCHE-2933170

PATIENT
  Age: 61 Year
  Sex: Male

DRUGS (1)
  1. CAPECITABINE [Suspect]
     Active Substance: CAPECITABINE
     Indication: Rectal cancer
     Dosage: CUMULATIVE DOSE OF 5,040 CGY, DIVIDED INTO 28 CYCLES
     Route: 065

REACTIONS (2)
  - Gastroenteritis radiation [Recovered/Resolved]
  - Ileal perforation [Recovered/Resolved]
